FAERS Safety Report 5705699-5 (Version None)
Quarter: 2008Q2

REPORT INFORMATION
  Report Type: 
  Country: None (occurrence: None)
  Receive Date: 20080415
  Receipt Date: 20080407
  Transmission Date: 20081010
  Serious: Yes (Other)
  Sender: FDA-Public Use
  Company Number: A0647430A

PATIENT
  Age: 64 Year
  Sex: Female

DRUGS (2)
  1. COREG [Suspect]
     Indication: LEFT VENTRICULAR DYSFUNCTION
     Dosage: 3.125MG TWICE PER DAY
     Route: 048
     Dates: start: 20050101, end: 20070411
  2. ATIVAN [Concomitant]

REACTIONS (7)
  - CATARACT [None]
  - CHEST PAIN [None]
  - DRY EYE [None]
  - FATIGUE [None]
  - FEELING COLD [None]
  - PALPITATIONS [None]
  - SOMNOLENCE [None]
